FAERS Safety Report 6579125-0 (Version None)
Quarter: 2010Q1

REPORT INFORMATION
  Report Type: 
  Country: None (occurrence: None)
  Receive Date: 20100212
  Receipt Date: 20100202
  Transmission Date: 20100710
  Serious: Yes (Other)
  Sender: FDA-Public Use
  Company Number: GB-NOVOPROD-300674

PATIENT
  Sex: Male
  Weight: 153 kg

DRUGS (14)
  1. LIRAGLUTIDE FLEXPEN [Suspect]
     Indication: TYPE 2 DIABETES MELLITUS
     Dosage: 1.8 MG, QD
     Route: 058
     Dates: start: 20090418
  2. METFORMIN [Concomitant]
  3. BENDROFLUAZIDE [Concomitant]
     Indication: HYPERTENSION
     Dosage: UNK
     Route: 048
     Dates: start: 20080115
  4. LANSOPRAZOLE [Concomitant]
     Indication: OESOPHAGITIS
     Dosage: UNK
     Route: 048
     Dates: start: 19970205
  5. NAPROXEN [Concomitant]
     Indication: OSTEOARTHRITIS
     Dosage: UNK
     Route: 048
     Dates: start: 19940301
  6. ETODOLAC [Concomitant]
     Indication: OSTEOARTHRITIS
     Dosage: UNK
     Route: 048
     Dates: start: 19940301
  7. ORLISTAT [Concomitant]
     Indication: CENTRAL OBESITY
     Dosage: UNK
     Route: 048
     Dates: start: 19860929
  8. ALBUTEROL [Concomitant]
     Indication: ASTHMA
     Dosage: UNK
     Route: 055
     Dates: start: 20050303
  9. BUDESONIDE W/FORMOTEROL FUMARATE [Concomitant]
     Indication: ASTHMA
     Dosage: UNK
     Dates: start: 20050303
  10. MONTELUKAST [Concomitant]
     Indication: ASTHMA
     Dosage: UNK
     Dates: start: 20050303
  11. CO-CODAMOL [Concomitant]
     Indication: SCIATICA
     Dosage: UNK
     Dates: start: 20011004
  12. TRAMADOL [Concomitant]
     Indication: ARTHRALGIA
     Dosage: UNK
     Dates: start: 19940310
  13. HYOSCINE HBR HYT [Concomitant]
     Indication: OESOPHAGITIS
     Dosage: UNK
     Dates: start: 19970205
  14. FLUOXETINE [Concomitant]
     Indication: DEPRESSION
     Dosage: 20 MG, QD
     Dates: start: 20090618

REACTIONS (1)
  - BENIGN INTRACRANIAL HYPERTENSION [None]
